FAERS Safety Report 6551381-4 (Version None)
Quarter: 2010Q1

REPORT INFORMATION
  Report Type: 
  Country: None (occurrence: None)
  Receive Date: 20100126
  Receipt Date: 20100116
  Transmission Date: 20100710
  Serious: Yes (Hospitalization, Other)
  Sender: FDA-Public Use
  Company Number: US-ROCHE-654394

PATIENT
  Sex: Female

DRUGS (8)
  1. PEG-INTERFERON A-2A (RO 25-8310) [Suspect]
     Indication: HEPATITIS C
     Dosage: FORM: PRE FILLED SYRINGE; PATIENT  IN WEEK 44 OF TREATMENT
     Route: 065
     Dates: start: 20090316
  2. RIBASPHERE [Suspect]
     Indication: HEPATITIS C
     Dosage: DIVIDED DOSES
     Route: 048
     Dates: start: 20090316
  3. NEUPOGEN [Concomitant]
  4. ARANESP [Concomitant]
  5. LISINOPRIL [Concomitant]
  6. LISINOPRIL [Concomitant]
     Dosage: DOSE DECREASED TO HALF
  7. INSULIN [Concomitant]
  8. LEVEMIR [Concomitant]

REACTIONS (14)
  - BLOOD GLUCOSE INCREASED [None]
  - BLOOD SODIUM DECREASED [None]
  - CHILLS [None]
  - DECREASED APPETITE [None]
  - DEHYDRATION [None]
  - DIABETIC KETOACIDOSIS [None]
  - DYSGEUSIA [None]
  - HYPERSOMNIA [None]
  - HYPOTENSION [None]
  - INJECTION SITE MASS [None]
  - MALAISE [None]
  - NAUSEA [None]
  - PYREXIA [None]
  - URINARY TRACT INFECTION [None]
